FAERS Safety Report 4941606-0 (Version None)
Quarter: 2006Q1

REPORT INFORMATION
  Report Type: 
  Country: None (occurrence: None)
  Receive Date: 20060308
  Receipt Date: 20060223
  Transmission Date: 20060701
  Serious: Yes (Congenital Anomaly)
  Sender: FDA-Public Use
  Company Number: 2006027744

PATIENT
  Sex: Male
  Weight: 13.8 kg

DRUGS (3)
  1. PREDNISOLONE [Suspect]
     Indication: COLITIS
     Dosage: (40 MG), PLACENTAL
  2. ASACOL [Suspect]
     Indication: ILL-DEFINED DISORDER
     Dosage: PLACENTAL
  3. PROPRANOLOL [Suspect]
     Indication: ILL-DEFINED DISORDER
     Dosage: PLACENTAL

REACTIONS (4)
  - CONGENITAL HEARING DISORDER [None]
  - DEAFNESS [None]
  - DRUG EXPOSURE DURING PREGNANCY [None]
  - NEONATAL DISORDER [None]
